FAERS Safety Report 6645690-8 (Version None)
Quarter: 2010Q1

REPORT INFORMATION
  Report Type: 
  Country: None (occurrence: None)
  Receive Date: 20100323
  Receipt Date: 20100309
  Transmission Date: 20100710
  Serious: Yes (Death, Other)
  Sender: FDA-Public Use
  Company Number: TR-JNJFOC-20100304036

PATIENT
  Age: 11 Month
  Sex: Male

DRUGS (5)
  1. INFLIXIMAB [Suspect]
     Indication: CROHN'S DISEASE
     Dosage: INDUCTION THERAPY
     Route: 042
  2. INFLIXIMAB [Suspect]
     Dosage: INDUCTION THERAPY
     Route: 042
  3. INFLIXIMAB [Suspect]
     Dosage: INDUCTION THERAPY
     Route: 042
  4. AZATHIOPRINE [Concomitant]
  5. STEROIDS NOS [Concomitant]

REACTIONS (7)
  - DRUG INEFFECTIVE [None]
  - FISTULA [None]
  - HYPERSENSITIVITY [None]
  - LEUKAEMOID REACTION [None]
  - OFF LABEL USE [None]
  - PYREXIA [None]
  - SEPSIS [None]
